FAERS Safety Report 4322604-7 (Version None)
Quarter: 2004Q1

REPORT INFORMATION
  Report Type: 
  Country: None (occurrence: None)
  Receive Date: 20040324
  Receipt Date: 20040306
  Transmission Date: 20041129
  Serious: Yes (Death, Other)
  Sender: FDA-Public Use
  Company Number: WAES 0403USA00769

PATIENT
  Age: 88 Year

DRUGS (5)
  1. FAMOTIDINE [Concomitant]
     Route: 048
     Dates: start: 20040226
  2. FUROSEMIDE [Concomitant]
     Dates: start: 20040226
  3. INSULIN HUMAN [Concomitant]
     Dates: start: 20040226
  4. ISOSORBIDE DINITRATE [Concomitant]
     Dates: start: 20040226
  5. COZAAR [Suspect]
     Indication: HYPERTENSION
     Route: 048
     Dates: start: 20040226, end: 20040304

REACTIONS (2)
  - DISSEMINATED INTRAVASCULAR COAGULATION [None]
  - PLATELET COUNT DECREASED [None]
